FAERS Safety Report 6384292-8 (Version None)
Quarter: 2009Q4

REPORT INFORMATION
  Report Type: 
  Country: None (occurrence: None)
  Receive Date: 20091001
  Receipt Date: 20090928
  Transmission Date: 20100525
  Serious: Yes (Hospitalization, Disabling)
  Sender: FDA-Public Use
  Company Number: US-MERCK-0907USA00163

PATIENT
  Age: 53 Year
  Sex: Female

DRUGS (6)
  1. FOSAMAX [Suspect]
     Indication: OSTEOPENIA
     Route: 048
     Dates: start: 19981116, end: 20010414
  2. FOSAMAX [Suspect]
     Route: 048
     Dates: start: 20010521, end: 20030901
  3. FOSAMAX [Suspect]
     Route: 048
     Dates: start: 20040830, end: 20080601
  4. FOSAMAX [Suspect]
     Route: 048
     Dates: start: 20080812, end: 20081102
  5. ZOLOFT [Concomitant]
     Indication: DEPRESSION
     Route: 065
     Dates: start: 19950101
  6. HORMONES (UNSPECIFIED) [Concomitant]
     Route: 065
     Dates: start: 19950101, end: 20081001

REACTIONS (7)
  - ARTHRITIS [None]
  - BACK PAIN [None]
  - DERMATITIS [None]
  - FEMUR FRACTURE [None]
  - GASTROOESOPHAGEAL REFLUX DISEASE [None]
  - LOW TURNOVER OSTEOPATHY [None]
  - OSTEOPOROSIS [None]
